FAERS Safety Report 6735674-3 (Version None)
Quarter: 2010Q2

REPORT INFORMATION
  Report Type: 
  Country: None (occurrence: None)
  Receive Date: 20100520
  Receipt Date: 20100520
  Transmission Date: 20101027
  Serious: Yes (Life-Threatening, Hospitalization)
  Sender: FDA-Public Use
  Company Number: None

PATIENT
  Age: 47 Year
  Sex: Male
  Weight: 74.3899 kg

DRUGS (1)
  1. XOLAIR [Suspect]
     Indication: ASTHMA
     Dosage: 300MG TWICE MONTHLY IN

REACTIONS (9)
  - FATIGUE [None]
  - JOINT SWELLING [None]
  - OEDEMA MOUTH [None]
  - OEDEMA PERIPHERAL [None]
  - PAIN [None]
  - SENSORY DISTURBANCE [None]
  - SYNCOPE [None]
  - T-LYMPHOCYTE COUNT DECREASED [None]
  - VITAMIN B COMPLEX DEFICIENCY [None]
